FAERS Safety Report 25208994 (Version 3)
Quarter: 2025Q2

REPORT INFORMATION
  Report Type: Spontaneous
  Country: JP (occurrence: JP)
  Receive Date: 20250417
  Receipt Date: 20250527
  Transmission Date: 20250717
  Serious: Yes (Death, Other)
  Sender: BRISTOL-MYERS SQUIBB COMPANY
  Company Number: JP-BRISTOL-MYERS SQUIBB COMPANY-2025-054041

PATIENT
  Age: 70 Year
  Sex: Male

DRUGS (1)
  1. BREYANZI [Suspect]
     Active Substance: LISOCABTAGENE MARALEUCEL
     Indication: Diffuse large B-cell lymphoma
     Route: 042
     Dates: start: 20241129, end: 20241129

REACTIONS (3)
  - Pancytopenia [Fatal]
  - Lung abscess [Fatal]
  - Myelosuppression [Unknown]

NARRATIVE: CASE EVENT DATE: 20241218
